FAERS Safety Report 9093555 (Version 1)
Quarter: 2013Q1

REPORT INFORMATION
  Report Type: Spontaneous
  Country: US (occurrence: None)
  Receive Date: 20130213
  Receipt Date: 20130213
  Transmission Date: 20140127
  Serious: Yes (Other)
  Sender: FDA-Public Use
  Company Number: None

PATIENT
  Age: 76 Year
  Sex: Male
  Weight: 78.93 kg

DRUGS (1)
  1. CLINDAMYCIN [Suspect]
     Indication: ARTHRITIS INFECTIVE
     Dates: start: 201209

REACTIONS (4)
  - Diarrhoea [None]
  - Weight decreased [None]
  - Confusional state [None]
  - Fear [None]
